FAERS Safety Report 7702242-6 (Version None)
Quarter: 2011Q3

REPORT INFORMATION
  Report Type: 
  Country: None (occurrence: None)
  Receive Date: 20110822
  Receipt Date: 20110812
  Transmission Date: 20111222
  Serious: Yes (Hospitalization, Other)
  Sender: FDA-Public Use
  Company Number: US-ASTRAZENECA-2011SE23274

PATIENT
  Age: 73 Year
  Sex: Male

DRUGS (26)
  1. NIASPAN [Concomitant]
     Route: 048
  2. LASIX [Concomitant]
     Route: 048
  3. TOPROL-XL [Suspect]
     Route: 048
  4. TOPROL-XL [Suspect]
     Route: 048
  5. SURFAK [Concomitant]
  6. ZINC [Concomitant]
     Route: 048
  7. LANTUS [Concomitant]
     Route: 058
  8. TRAMADOL HCL [Concomitant]
     Route: 048
  9. POTASSIUM CHLORIDE [Concomitant]
  10. DIGOXIN [Concomitant]
     Route: 048
  11. ASCORBIC ACID [Concomitant]
     Route: 048
  12. CRESTOR [Suspect]
     Route: 048
  13. ASPIRIN [Concomitant]
  14. METFORMIN HCL [Concomitant]
     Route: 048
  15. ACCUPRIL [Concomitant]
     Route: 048
  16. NORVASC [Concomitant]
  17. LASIX [Concomitant]
     Route: 042
  18. AMIODARONE HCL [Concomitant]
     Route: 048
  19. NEXIUM [Suspect]
     Route: 048
  20. ACTOS [Concomitant]
     Route: 048
  21. GLUCOVANCE [Concomitant]
     Dosage: 5/500
     Route: 048
  22. LANTUS [Concomitant]
     Route: 058
  23. VALIUM [Concomitant]
     Route: 048
  24. NORCO [Concomitant]
     Route: 048
  25. COMBIVENT [Concomitant]
     Route: 055
  26. AMIODARONE HCL [Concomitant]

REACTIONS (22)
  - ACUTE MYOCARDIAL INFARCTION [None]
  - ARTERIOSCLEROSIS CORONARY ARTERY [None]
  - RENAL ARTERY OCCLUSION [None]
  - CHRONIC OBSTRUCTIVE PULMONARY DISEASE [None]
  - ACUTE CORONARY SYNDROME [None]
  - ANGINA UNSTABLE [None]
  - AORTIC ARTERIOSCLEROSIS [None]
  - CARDIAC FAILURE CONGESTIVE [None]
  - ILIAC ARTERY OCCLUSION [None]
  - EJECTION FRACTION DECREASED [None]
  - CORONARY ARTERY BYPASS [None]
  - OEDEMA PERIPHERAL [None]
  - DYSPNOEA [None]
  - DYSPNOEA PAROXYSMAL NOCTURNAL [None]
  - CHEST PAIN [None]
  - ARTERIAL STENT INSERTION [None]
  - PULMONARY OEDEMA [None]
  - NAUSEA [None]
  - CARDIOMEGALY [None]
  - MITRAL VALVE INCOMPETENCE [None]
  - CATHETERISATION CARDIAC [None]
  - PRODUCTIVE COUGH [None]
